FAERS Safety Report 7768684-8 (Version None)
Quarter: 2011Q3

REPORT INFORMATION
  Report Type: 
  Country: None (occurrence: None)
  Receive Date: 20110922
  Receipt Date: 20110509
  Transmission Date: 20111222
  Serious: No
  Sender: FDA-Public Use
  Company Number: US-ASTRAZENECA-2011SE27138

PATIENT
  Age: 80 Year
  Sex: Male

DRUGS (4)
  1. SEROQUEL [Suspect]
     Indication: SLEEP DISORDER
     Route: 048
     Dates: start: 20101001
  2. CABAPENTIN [Concomitant]
  3. TRAZODONE HYDROCHLORIDE [Concomitant]
  4. SETALAPRAM [Concomitant]

REACTIONS (6)
  - WRONG TECHNIQUE IN DRUG USAGE PROCESS [None]
  - ADVERSE EVENT [None]
  - WEIGHT FLUCTUATION [None]
  - OFF LABEL USE [None]
  - TERMINAL INSOMNIA [None]
  - INSOMNIA [None]
